FAERS Safety Report 25930943 (Version 3)
Quarter: 2025Q4

REPORT INFORMATION
  Report Type: Spontaneous
  Country: US (occurrence: US)
  Receive Date: 20251016
  Receipt Date: 20251112
  Transmission Date: 20260118
  Serious: Yes (Hospitalization, Other)
  Sender: SANOFI AVENTIS
  Company Number: US-SA-2025SA307254

PATIENT
  Age: 50 Year
  Sex: Male

DRUGS (1)
  1. DUPIXENT [Suspect]
     Active Substance: DUPILUMAB
     Indication: Gastritis
     Dosage: 300 MG, QW
     Route: 058

REACTIONS (8)
  - Diverticulitis [Recovering/Resolving]
  - Gastritis [Recovering/Resolving]
  - Ocular discomfort [Unknown]
  - Dizziness [Unknown]
  - Vision blurred [Unknown]
  - Rash [Recovered/Resolved]
  - Injection site erythema [Unknown]
  - Product use in unapproved indication [Unknown]
